FAERS Safety Report 7531483-6 (Version None)
Quarter: 2011Q2

REPORT INFORMATION
  Report Type: 
  Country: None (occurrence: None)
  Receive Date: 20110531
  Receipt Date: 20110523
  Transmission Date: 20111010
  Serious: Yes (Hospitalization)
  Sender: FDA-Public Use
  Company Number: LEO-2011-00461

PATIENT
  Age: 30 Year
  Sex: Female

DRUGS (2)
  1. INNOHEP [Suspect]
     Indication: PULMONARY EMBOLISM
     Dosage: 0.6 ML (0.6 ML,1 IN 1 D),SUBCUTANEOUS
     Route: 058
     Dates: start: 20110420, end: 20110609
  2. AVASTIN [Concomitant]

REACTIONS (3)
  - HAEMATOMA [None]
  - PELVIC HAEMATOMA [None]
  - PYREXIA [None]
